FAERS Safety Report 5594182-6 (Version None)
Quarter: 2008Q1

REPORT INFORMATION
  Report Type: 
  Country: None (occurrence: None)
  Receive Date: 20080115
  Receipt Date: 20080102
  Transmission Date: 20080703
  Serious: Yes (Death, Hospitalization)
  Sender: FDA-Public Use
  Company Number: 2007328819

PATIENT
  Age: 33 Year
  Sex: Female
  Weight: 60.8 kg

DRUGS (3)
  1. BENADRYL [Suspect]
     Dosage: 2  BOTTLES, ORAL
     Route: 048
  2. TYLENOL PM (DIPHENHYDRAMINE, PARACETAMOL) [Suspect]
     Dosage: ^7-8 BOTTLES^, ORAL
     Route: 048
     Dates: start: 20070507
  3. ANTIPSYCHOTICS (ANTIPSYCHOTICS) [Concomitant]

REACTIONS (7)
  - ACTIVATED PARTIAL THROMBOPLASTIN TIME PROLONGED [None]
  - ANALGESIC DRUG LEVEL INCREASED [None]
  - BLOOD AMYLASE INCREASED [None]
  - CARDIO-RESPIRATORY ARREST [None]
  - HEPATIC FAILURE [None]
  - INCORRECT DOSE ADMINISTERED [None]
  - LIPASE INCREASED [None]
